FAERS Safety Report 15429645 (Version 3)
Quarter: 2019Q2

REPORT INFORMATION
  Report Type: Spontaneous
  Country: US (occurrence: US)
  Receive Date: 20180926
  Receipt Date: 20190411
  Transmission Date: 20190711
  Serious: Yes (Hospitalization, Other)
  Sender: FDA-Public Use
  Company Number: US-PFIZER INC-2018383594

PATIENT
  Age: 81 Year
  Sex: Female

DRUGS (2)
  1. PERCOCET [OXYCODONE HYDROCHLORIDE;OXYCODONE TEREPHTHALATE;PARACETAMOL] [Concomitant]
     Active Substance: ACETAMINOPHEN\OXYCODONE HYDROCHLORIDE\OXYCODONE TEREPHTHALATE
     Dosage: ^1 DAILY^
  2. GABAPENTIN. [Suspect]
     Active Substance: GABAPENTIN
     Dosage: 3200 MG, DAILY (FOUR OF 800 MG TABLET)

REACTIONS (5)
  - Gait disturbance [Unknown]
  - Pain [Unknown]
  - Anxiety [Unknown]
  - Depression [Unknown]
  - Neuropathy peripheral [Unknown]
